FAERS Safety Report 7378638-1 (Version None)
Quarter: 2011Q1

REPORT INFORMATION
  Report Type: 
  Country: None (occurrence: None)
  Receive Date: 20110317
  Receipt Date: 20110308
  Transmission Date: 20110831
  Serious: Yes (Hospitalization)
  Sender: FDA-Public Use
  Company Number: 018799

PATIENT
  Sex: Female
  Weight: 45 kg

DRUGS (9)
  1. NEUPRO [Suspect]
     Dosage: SEE IMAGE: TRANSDERMAL
     Route: 062
     Dates: start: 20091007, end: 20091102
  2. NEUPRO [Suspect]
     Dosage: SEE IMAGE: TRANSDERMAL
     Route: 062
     Dates: start: 20100402, end: 20100407
  3. NEUPRO [Suspect]
     Dosage: SEE IMAGE: TRANSDERMAL
     Route: 062
     Dates: start: 20100814, end: 20100831
  4. NEUPRO [Suspect]
     Dosage: SEE IMAGE: TRANSDERMAL
     Route: 062
     Dates: start: 20100901, end: 20110210
  5. NEUPRO [Suspect]
     Dosage: SEE IMAGE: TRANSDERMAL
     Route: 062
     Dates: start: 20091103, end: 20100401
  6. NEUPRO [Suspect]
     Dosage: SEE IMAGE: TRANSDERMAL
     Route: 062
     Dates: start: 20100408, end: 20100714
  7. NEUPRO [Suspect]
     Dosage: SEE IMAGE: TRANSDERMAL
     Route: 062
     Dates: start: 20100715, end: 20100813
  8. CARBIDOPA + LEVODOPA [Concomitant]
  9. LEVODOPA COMP. C [Concomitant]

REACTIONS (2)
  - ATRIAL FIBRILLATION [None]
  - HYPERKALAEMIA [None]
